FAERS Safety Report 6650326-6 (Version None)
Quarter: 2010Q1

REPORT INFORMATION
  Report Type: 
  Country: None (occurrence: None)
  Receive Date: 20100325
  Receipt Date: 20100318
  Transmission Date: 20100710
  Serious: Yes (Other)
  Sender: FDA-Public Use
  Company Number: PHEH2010US03213

PATIENT
  Sex: Female

DRUGS (3)
  1. ZOMETA [Suspect]
     Indication: METASTASES TO BONE
     Dosage: 4 MG EVERY 4 WEEKS
     Route: 042
     Dates: start: 20080301, end: 20091001
  2. XELODA [Concomitant]
  3. AVASTIN [Concomitant]

REACTIONS (3)
  - HIP SURGERY [None]
  - OSTEONECROSIS [None]
  - TOOTH EXTRACTION [None]
